FAERS Safety Report 18065915 (Version 2)
Quarter: 2020Q3

REPORT INFORMATION
  Report Type: Spontaneous
  Country: US (occurrence: US)
  Receive Date: 20200724
  Receipt Date: 20200728
  Transmission Date: 20201103
  Serious: No
  Sender: FDA-Public Use
  Company Number: NVSC2020US203923

PATIENT
  Sex: Female

DRUGS (2)
  1. FEMARA [Suspect]
     Active Substance: LETROZOLE
     Indication: PRODUCT USED FOR UNKNOWN INDICATION
     Dosage: UNK
     Route: 065
  2. IBRANCE [Suspect]
     Active Substance: PALBOCICLIB
     Indication: BREAST CANCER METASTATIC
     Dosage: 125 MG, QD
     Route: 048
     Dates: start: 20200612

REACTIONS (9)
  - Gastrooesophageal reflux disease [Unknown]
  - Dizziness [Unknown]
  - Epistaxis [Unknown]
  - Skin disorder [Unknown]
  - Contusion [Unknown]
  - Fatigue [Unknown]
  - Pain [Unknown]
  - Somnolence [Unknown]
  - Arthralgia [Unknown]
